FAERS Safety Report 5917103-2 (Version None)
Quarter: 2008Q4

REPORT INFORMATION
  Report Type: 
  Country: None (occurrence: None)
  Receive Date: 20081010
  Receipt Date: 20081010
  Transmission Date: 20090506
  Serious: Yes (Disabling)
  Sender: FDA-Public Use
  Company Number: None

PATIENT
  Sex: Female
  Weight: 68.0396 kg

DRUGS (2)
  1. ZYPREXA [Suspect]
     Indication: DEPRESSION
     Dosage: 5 MG 5 MG/DAY ORAL
     Route: 048
     Dates: start: 20070416, end: 20070601
  2. ZYPREXA [Suspect]
     Indication: DEPRESSION
     Dosage: 5 MG 5 MG/DAY ORAL
     Route: 048
     Dates: start: 20080901

REACTIONS (11)
  - ABASIA [None]
  - ARTHRALGIA [None]
  - DRUG EFFECT DECREASED [None]
  - JOINT SWELLING [None]
  - MIGRAINE [None]
  - NIGHT SWEATS [None]
  - NIGHTMARE [None]
  - PAIN IN EXTREMITY [None]
  - PRODUCT QUALITY ISSUE [None]
  - TENDON RUPTURE [None]
  - WEIGHT DECREASED [None]
